FAERS Safety Report 4893563-3 (Version None)
Quarter: 2005Q4

REPORT INFORMATION
  Report Type: 
  Country: None (occurrence: None)
  Receive Date: 20051223
  Receipt Date: 20050917
  Transmission Date: 20060501
  Serious: No
  Sender: FDA-Public Use
  Company Number: 2005PV002174

PATIENT
  Age: 55 Year
  Sex: Female
  Weight: 145.151 kg

DRUGS (5)
  1. SYMLIN [Suspect]
     Indication: DIABETES MELLITUS NON-INSULIN-DEPENDENT
     Dosage: 120 MCG;BID;SC ; TID;SC
     Route: 058
     Dates: start: 20050912, end: 20050901
  2. SYMLIN [Suspect]
     Indication: DIABETES MELLITUS NON-INSULIN-DEPENDENT
     Dosage: 120 MCG;BID;SC ; TID;SC
     Route: 058
     Dates: start: 20050901
  3. HUMALOG MIX 25 [Concomitant]
  4. ALTACE [Concomitant]
  5. AVANDIA [Concomitant]

REACTIONS (1)
  - BLOOD GLUCOSE INCREASED [None]
